FAERS Safety Report 13838637 (Version 2)
Quarter: 2017Q3

REPORT INFORMATION
  Report Type: Report from Study
  Country: CO (occurrence: CO)
  Receive Date: 20170807
  Receipt Date: 20170818
  Transmission Date: 20171127
  Serious: Yes (Other)
  Sender: FDA-Public Use
  Company Number: PHHY2017CO113569

PATIENT
  Sex: Male
  Weight: 54 kg

DRUGS (2)
  1. AFINITOR [Suspect]
     Active Substance: EVEROLIMUS
     Dosage: 2 DF, QD (2 TABLETS OF 5 MG)
     Route: 048
     Dates: start: 20170717
  2. AFINITOR [Suspect]
     Active Substance: EVEROLIMUS
     Indication: NEUROENDOCRINE TUMOUR
     Dosage: 1 DF, QD (1 TABLET OF 5 MG)
     Route: 048
     Dates: start: 20170206

REACTIONS (2)
  - Headache [Unknown]
  - Brain neoplasm [Unknown]
